FAERS Safety Report 7526237-0 (Version None)
Quarter: 2011Q2

REPORT INFORMATION
  Report Type: 
  Country: None (occurrence: None)
  Receive Date: 20110606
  Receipt Date: 20110526
  Transmission Date: 20111010
  Serious: Yes (Hospitalization)
  Sender: FDA-Public Use
  Company Number: PHHY2011ES47709

PATIENT
  Age: 68 Year
  Sex: Female

DRUGS (10)
  1. LENALIDOMIDE [Suspect]
     Dosage: 15 MG/DAY
  2. CARMUSTINE [Suspect]
  3. MELPHALAN HYDROCHLORIDE [Suspect]
  4. PREDNISONE [Suspect]
  5. LENALIDOMIDE [Suspect]
     Dosage: 10 MG/DAY
  6. DOXORUBICIN HCL [Suspect]
  7. DEXAMETHASONE [Suspect]
  8. VINCRISTINE [Suspect]
  9. CYCLOPHOSPHAMIDE [Suspect]
  10. LENALIDOMIDE [Suspect]
     Dosage: 25 MG/DAY

REACTIONS (5)
  - HAEMATOTOXICITY [None]
  - NEUTROPENIA [None]
  - DRUG INEFFECTIVE [None]
  - ADRENAL INSUFFICIENCY [None]
  - PYREXIA [None]
